FAERS Safety Report 21325972 (Version 1)
Quarter: 2022Q3

REPORT INFORMATION
  Report Type: Spontaneous
  Country: RU (occurrence: RU)
  Receive Date: 20220913
  Receipt Date: 20220913
  Transmission Date: 20221027
  Serious: Yes (Death, Hospitalization)
  Sender: FDA-Public Use
  Company Number: RU-JNJFOC-20210832726

PATIENT
  Age: 51 Year
  Sex: Male
  Weight: 60 kg

DRUGS (12)
  1. SIRTURO [Suspect]
     Active Substance: BEDAQUILINE FUMARATE
     Indication: Pulmonary tuberculosis
     Dosage: 400/200 MG PER OS
     Route: 048
     Dates: start: 20210413
  2. SIRTURO [Suspect]
     Active Substance: BEDAQUILINE FUMARATE
     Dosage: 400/200 MG PER OS
     Route: 048
     Dates: start: 20210413, end: 20210813
  3. LINEZOLID [Suspect]
     Active Substance: LINEZOLID
     Indication: Pulmonary tuberculosis
     Route: 048
     Dates: start: 20210413, end: 20210813
  4. LEVOFLOXACIN [Suspect]
     Active Substance: LEVOFLOXACIN
     Indication: Pulmonary tuberculosis
     Route: 048
     Dates: start: 20210413, end: 20210813
  5. CLOFAZIMINE [Suspect]
     Active Substance: CLOFAZIMINE
     Indication: Pulmonary tuberculosis
     Route: 048
     Dates: start: 20210413, end: 20210813
  6. VITAMIN B6 [Concomitant]
     Active Substance: PYRIDOXINE HYDROCHLORIDE
     Indication: Prophylaxis
     Route: 065
     Dates: start: 20210413
  7. BENFOTIAMINE\CYANOCOBALAMIN [Concomitant]
     Active Substance: BENFOTIAMINE\CYANOCOBALAMIN
  8. DICLOFENAC [Concomitant]
     Active Substance: DICLOFENAC
     Dosage: 3 ML ?10
     Dates: start: 20210422, end: 20210426
  9. CEFOTAXIME [Concomitant]
     Active Substance: CEFOTAXIME SODIUM
     Dosage: 1,0
     Dates: start: 20210422, end: 20210426
  10. PHENAZEPAM [Concomitant]
     Active Substance: PHENAZEPAM
     Dosage: 1% 1ML ?10
     Dates: start: 20210512
  11. KETOROLAC [Concomitant]
     Active Substance: KETOROLAC TROMETHAMINE
     Dosage: 1 ML ?10
     Dates: start: 20210512
  12. ETHAMSYLATE [Concomitant]
     Active Substance: ETHAMSYLATE
     Dosage: 2ML ?10
     Dates: start: 20210512

REACTIONS (1)
  - Oropharyngeal cancer [Fatal]

NARRATIVE: CASE EVENT DATE: 20210513
